FAERS Safety Report 12745075 (Version 3)
Quarter: 2017Q1

REPORT INFORMATION
  Report Type: Spontaneous
  Country: IT (occurrence: IT)
  Receive Date: 20160915
  Receipt Date: 20170206
  Transmission Date: 20170428
  Serious: Yes (Hospitalization)
  Sender: FDA-Public Use
  Company Number: IT-ACCORD-043966

PATIENT
  Age: 32 Year
  Sex: Male

DRUGS (5)
  1. KEPPRA [Suspect]
     Active Substance: LEVETIRACETAM
     Indication: PERSONALITY DISORDER
     Dosage: 500 MG FILM COATED TABLET, 1 DOSAGE FORM DAILY??USUALLY TOOK KEPPRA 500 MG TWICE DAILY,
     Route: 048
     Dates: start: 20160721, end: 20160722
  2. DEPAKIN CHRONO RP [Suspect]
     Active Substance: VALPROIC ACID
     Dosage: DAILY,??STRENGTH: 300 MG??USUALLY TOOK DEPAKIN CRONO 2 DOSAGE FORM DAILY
     Route: 048
     Dates: start: 20160721, end: 20160722
  3. QUETIAPINE. [Suspect]
     Active Substance: QUETIAPINE
     Dosage: USUALLY TOOK QUETIAPINE 200 MG 3 DOSAGE FORM DAILY
     Dates: start: 20160721, end: 20160722
  4. ETILTOX [Concomitant]
     Active Substance: DISULFIRAM
     Dosage: STRENGTH: 200 MG??USUALLY TOOK ETILTOX 200 MG IN THE MORNING
     Dates: start: 20170120
  5. NOZINAN [Suspect]
     Active Substance: LEVOMEPROMAZINE
     Dosage: USUALLY TOOK NOZINAN 10 MG 1 DOSAGE FORM DAILY
     Route: 048
     Dates: start: 20160721, end: 20160721

REACTIONS (4)
  - Bradyphrenia [Unknown]
  - Drug diversion [None]
  - Somnolence [Unknown]
  - Drug abuse [Unknown]

NARRATIVE: CASE EVENT DATE: 20160722
